FAERS Safety Report 6756347-7 (Version None)
Quarter: 2010Q2

REPORT INFORMATION
  Report Type: 
  Country: None (occurrence: None)
  Receive Date: 20100604
  Receipt Date: 20100602
  Transmission Date: 20101027
  Serious: Yes (Hospitalization, Other)
  Sender: FDA-Public Use
  Company Number: AT-BAYER-201026947GPV

PATIENT
  Sex: Female
  Weight: 29 kg

DRUGS (9)
  1. NEXAVAR [Suspect]
     Indication: RENAL CELL CARCINOMA
     Route: 048
     Dates: start: 20070601, end: 20070801
  2. NEXAVAR [Suspect]
     Route: 048
     Dates: start: 20071001, end: 20080101
  3. NEXAVAR [Suspect]
     Route: 048
     Dates: start: 20070801, end: 20070801
  4. LEVOTHYROXINE SODIUM [Concomitant]
     Indication: HYPOTHYROIDISM
  5. ENALAPRIL-HYDROCHLOROTHIAZID [Concomitant]
     Indication: HYPERTENSION
  6. METOPROLOL TARTRATE [Concomitant]
     Indication: HYPERTENSION
  7. MARCUMAR [Concomitant]
     Indication: ANTICOAGULANT THERAPY
  8. LOW-MOLECULAR HEPARIN [Concomitant]
     Indication: ANTICOAGULANT THERAPY
  9. LOW-MOLECULAR HEPARIN [Concomitant]
     Dosage: DOSE REDUCTION

REACTIONS (12)
  - BLISTER [None]
  - DIARRHOEA [None]
  - FATIGUE [None]
  - HAEMORRHAGE [None]
  - HYPOCALCAEMIA [None]
  - HYPOKALAEMIA [None]
  - NAUSEA [None]
  - PAIN IN EXTREMITY [None]
  - PALMAR-PLANTAR ERYTHRODYSAESTHESIA SYNDROME [None]
  - TETANY [None]
  - VOMITING [None]
  - WEIGHT DECREASED [None]
